FAERS Safety Report 5844985-5 (Version None)
Quarter: 2008Q3

REPORT INFORMATION
  Report Type: 
  Country: None (occurrence: None)
  Receive Date: 20080813
  Receipt Date: 20080813
  Transmission Date: 20090109
  Serious: No
  Sender: FDA-Public Use
  Company Number: None

PATIENT
  Sex: Female

DRUGS (2)
  1. SEROQUEL XR [Suspect]
     Dosage: 200MG HS PO
     Route: 048
     Dates: start: 20080601, end: 20080812
  2. DEPAKOTE ER [Suspect]
     Dosage: 1000MG HS PO
     Route: 048
     Dates: start: 20080601, end: 20080812

REACTIONS (2)
  - ARTHRALGIA [None]
  - MYALGIA [None]
